FAERS Safety Report 24033999 (Version 2)
Quarter: 2024Q3

REPORT INFORMATION
  Report Type: Spontaneous
  Country: US (occurrence: US)
  Receive Date: 20240701
  Receipt Date: 20240717
  Transmission Date: 20241016
  Serious: Yes (Disabling, Other)
  Sender: REGENERON
  Company Number: US-REGENERON PHARMACEUTICALS, INC.-2024-090093

PATIENT
  Sex: Female

DRUGS (2)
  1. EYLEA [Suspect]
     Active Substance: AFLIBERCEPT
     Indication: Macular degeneration
     Dosage: UNK, IN THE RIGHT EYE, FORMULATION: UNKNOWN
     Dates: start: 202101
  2. EYLEA [Suspect]
     Active Substance: AFLIBERCEPT
     Dosage: UNK, IN THE RIGHT EYE, FORMULATION: UNKNOWN

REACTIONS (2)
  - Blindness unilateral [Unknown]
  - Visual impairment [Unknown]
